FAERS Safety Report 9340838 (Version 2)
Quarter: 2013Q2

REPORT INFORMATION
  Report Type: Spontaneous
  Country: IT (occurrence: None)
  Receive Date: 20130605
  Receipt Date: 20130611
  Transmission Date: 20140414
  Serious: Yes (Hospitalization)
  Sender: FDA-Public Use
  Company Number: TIF2013A00097

PATIENT
  Age: 25 Year
  Sex: Female

DRUGS (2)
  1. LANSOPRAZOLE [Suspect]
     Dosage: 3 TABLETS, 30 MG
     Route: 048
     Dates: start: 20130511, end: 20130511
  2. IBUPROFEN [Suspect]
     Dosage: 10 TABLETS, 600 MG
     Route: 048
     Dates: start: 20130511, end: 20130511

REACTIONS (3)
  - Toxicity to various agents [None]
  - Drug abuse [None]
  - Refusal of treatment by patient [None]
